FAERS Safety Report 8672795 (Version 2)
Quarter: 2013Q4

REPORT INFORMATION
  Report Type: Report from Study
  Country: US (occurrence: US)
  Receive Date: 20120719
  Receipt Date: 20131108
  Transmission Date: 20140711
  Serious: Yes (Other)
  Sender: FDA-Public Use
  Company Number: US-009507513-1207USA005419

PATIENT
  Sex: Female

DRUGS (1)
  1. REBETOL [Suspect]
     Indication: HEPATITIS C
     Dosage: UNK
     Dates: start: 20100701, end: 20100801

REACTIONS (4)
  - Myocardial infarction [Unknown]
  - Influenza like illness [Unknown]
  - Fatigue [Unknown]
  - Dysgeusia [Unknown]
